FAERS Safety Report 17643432 (Version 1)
Quarter: 2020Q2

REPORT INFORMATION
  Report Type: Spontaneous
  Country: US (occurrence: US)
  Receive Date: 20200407
  Receipt Date: 20200407
  Transmission Date: 20200713
  Serious: Yes (Disabling)
  Sender: FDA-Public Use
  Company Number: None

PATIENT
  Age: 42 Year
  Sex: Female
  Weight: 85.5 kg

DRUGS (6)
  1. ONE A DAY WOMEN^S VITAMIN [Concomitant]
  2. METFORMIN [Concomitant]
     Active Substance: METFORMIN HYDROCHLORIDE
  3. TRULICITY [Suspect]
     Active Substance: DULAGLUTIDE
     Indication: GLUCOSE TOLERANCE IMPAIRED
     Dosage: ?          QUANTITY:1 INJECTION(S);OTHER FREQUENCY:ONCE A WEEK;?
     Route: 058
     Dates: start: 20200322, end: 20200322
  4. XYZAL [Concomitant]
     Active Substance: LEVOCETIRIZINE DIHYDROCHLORIDE
  5. NIKKI [Concomitant]
     Active Substance: DROSPIRENONE\ETHINYL ESTRADIOL
  6. LEVOTHYROXIN [Concomitant]
     Active Substance: LEVOTHYROXINE

REACTIONS (20)
  - Fatigue [None]
  - Dry mouth [None]
  - Dyspepsia [None]
  - Oropharyngeal pain [None]
  - Vision blurred [None]
  - Abdominal pain upper [None]
  - Pain [None]
  - Headache [None]
  - Nausea [None]
  - Chest pain [None]
  - Dizziness [None]
  - Flatulence [None]
  - Eructation [None]
  - Constipation [None]
  - Insomnia [None]
  - Economic problem [None]
  - Diarrhoea [None]
  - Abdominal distension [None]
  - Irritability [None]
  - Impaired work ability [None]

NARRATIVE: CASE EVENT DATE: 20200322
